FAERS Safety Report 5447678-1 (Version None)
Quarter: 2007Q3

REPORT INFORMATION
  Report Type: 
  Country: None (occurrence: None)
  Receive Date: 20070910
  Receipt Date: 20070905
  Transmission Date: 20080115
  Serious: Yes (Life-Threatening, Hospitalization)
  Sender: FDA-Public Use
  Company Number: US-ROCHE-513140

PATIENT
  Age: 56 Year
  Sex: Male
  Weight: 86.2 kg

DRUGS (4)
  1. VALIUM [Suspect]
     Indication: SEDATION
     Route: 048
     Dates: start: 20070810, end: 20070810
  2. CIPROFLOXACIN [Suspect]
     Indication: PROPHYLAXIS
     Route: 048
     Dates: start: 20070810, end: 20070810
  3. PERCOCET [Suspect]
     Indication: PAIN PROPHYLAXIS
     Dosage: STRENGTH REPORTED AS: 5/325 MG, 2 TABS ONCE, MANUFACTURER REPORTED AS: ENDO
     Route: 048
     Dates: start: 20070810, end: 20070810
  4. VYTORIN [Concomitant]

REACTIONS (8)
  - ASTHENIA [None]
  - CARDIAC ARREST [None]
  - CONVULSION [None]
  - FATIGUE [None]
  - HEADACHE [None]
  - NAUSEA [None]
  - RESPIRATORY ARREST [None]
  - SYNCOPE [None]
